FAERS Safety Report 5598051-7 (Version None)
Quarter: 2008Q1

REPORT INFORMATION
  Report Type: 
  Country: None (occurrence: None)
  Receive Date: 20080116
  Receipt Date: 20080102
  Transmission Date: 20080703
  Serious: Yes (Other)
  Sender: FDA-Public Use
  Company Number: 100#08#2008-00094

PATIENT
  Age: 66 Year
  Sex: Female

DRUGS (3)
  1. METHOTREXATE [Suspect]
     Indication: ACUTE PROMYELOCYTIC LEUKAEMIA
     Dosage: 15 MG INTRATHECAL
     Route: 037
  2. CYTARABINE [Suspect]
     Indication: ACUTE PROMYELOCYTIC LEUKAEMIA
     Dosage: 40 MG INTRATHECAL
     Route: 037
  3. PREDNISONE [Suspect]
     Indication: ACUTE PROMYELOCYTIC LEUKAEMIA
     Dosage: 10 MG INTRATHECAL
     Route: 037

REACTIONS (3)
  - ALTERED STATE OF CONSCIOUSNESS [None]
  - FATIGUE [None]
  - INAPPROPRIATE ANTIDIURETIC HORMONE SECRETION [None]
